FAERS Safety Report 6960159-9 (Version None)
Quarter: 2010Q3

REPORT INFORMATION
  Report Type: 
  Country: None (occurrence: None)
  Receive Date: 20100901
  Receipt Date: 20100826
  Transmission Date: 20110219
  Serious: Yes (Death, Hospitalization)
  Sender: FDA-Public Use
  Company Number: JP-SANOFI-AVENTIS-2010SA047342

PATIENT
  Age: 66 Year
  Sex: Female

DRUGS (3)
  1. TAXOTERE [Suspect]
     Dates: start: 20100507, end: 20100709
  2. TRASTUZUMAB [Suspect]
     Dates: start: 20100507, end: 20100709
  3. CYCLOPHOSPHAMIDE [Suspect]
     Dates: start: 20100507, end: 20100709

REACTIONS (2)
  - CEREBRAL INFARCTION [None]
  - INTERSTITIAL LUNG DISEASE [None]
